FAERS Safety Report 24854113 (Version 1)
Quarter: 2025Q1

REPORT INFORMATION
  Report Type: Spontaneous
  Country: CN (occurrence: CN)
  Receive Date: 20250117
  Receipt Date: 20250117
  Transmission Date: 20250408
  Serious: Yes (Other)
  Sender: ALEXION PHARMACEUTICALS
  Company Number: CN-ASTRAZENECA-202501GLO008044CN

PATIENT
  Age: 58 Year

DRUGS (12)
  1. GEFITINIB [Suspect]
     Active Substance: GEFITINIB
     Indication: Lung adenocarcinoma stage IV
     Dosage: 250 MILLIGRAM, QD
     Route: 065
  2. GEFITINIB [Suspect]
     Active Substance: GEFITINIB
     Dosage: 250 MILLIGRAM, QD
     Route: 065
  3. GEFITINIB [Suspect]
     Active Substance: GEFITINIB
     Dosage: 250 MILLIGRAM, QD
     Route: 065
  4. GEFITINIB [Suspect]
     Active Substance: GEFITINIB
     Dosage: 250 MILLIGRAM, QD
     Route: 065
  5. GEFITINIB [Suspect]
     Active Substance: GEFITINIB
     Route: 065
  6. GEFITINIB [Suspect]
     Active Substance: GEFITINIB
     Route: 065
  7. GEFITINIB [Suspect]
     Active Substance: GEFITINIB
     Route: 065
  8. GEFITINIB [Suspect]
     Active Substance: GEFITINIB
     Route: 065
  9. AUMOLERTINIB [Suspect]
     Active Substance: AUMOLERTINIB
     Indication: Lung adenocarcinoma stage IV
     Route: 065
  10. AUMOLERTINIB [Suspect]
     Active Substance: AUMOLERTINIB
     Route: 065
  11. LAROTRECTINIB [Suspect]
     Active Substance: LAROTRECTINIB
     Indication: Lung adenocarcinoma stage IV
     Dosage: 100 MILLIGRAM, BID
     Route: 048
  12. LAROTRECTINIB [Suspect]
     Active Substance: LAROTRECTINIB
     Dosage: 100 MILLIGRAM, BID

REACTIONS (4)
  - Drug resistance mutation [Unknown]
  - Dermatitis [Recovered/Resolved]
  - Drug resistance [Unknown]
  - Malignant neoplasm progression [Unknown]
